FAERS Safety Report 10206017 (Version 1)
Quarter: 2014Q2

REPORT INFORMATION
  Report Type: Spontaneous
  Country: US (occurrence: None)
  Receive Date: 20140527
  Receipt Date: 20140527
  Transmission Date: 20141212
  Serious: Yes (Other)
  Sender: FDA-Public Use
  Company Number: None

PATIENT
  Age: 47 Year
  Sex: Female

DRUGS (5)
  1. AMPYRA 10 MG ACORDA [Suspect]
     Indication: MULTIPLE SCLEROSIS
     Route: 048
     Dates: start: 201401, end: 201405
  2. AMPRYRA [Concomitant]
  3. TECFIDERA [Concomitant]
  4. TRIAMCINOLONE CREAM [Concomitant]
  5. CLOBESTASOL GEL [Concomitant]

REACTIONS (1)
  - Drug ineffective [None]
